FAERS Safety Report 7201702-4 (Version None)
Quarter: 2010Q4

REPORT INFORMATION
  Report Type: 
  Country: None (occurrence: None)
  Receive Date: 20101229
  Receipt Date: 20101223
  Transmission Date: 20110411
  Serious: Yes (Other)
  Sender: FDA-Public Use
  Company Number: GB-B.I. PHARMACEUTICALS,INC./RIDGEFIELD-2010-DE-07166GD

PATIENT
  Age: 45 Year
  Sex: Male

DRUGS (2)
  1. CLONIDINE [Suspect]
     Indication: HYPERTENSION
  2. ATENOLOL [Suspect]
     Indication: HYPERTENSION

REACTIONS (2)
  - HYPERTENSION [None]
  - LABORATORY TEST INTERFERENCE [None]
